FAERS Safety Report 17139511 (Version 1)
Quarter: 2019Q4

REPORT INFORMATION
  Report Type: Other
  Country: GB (occurrence: GB)
  Receive Date: 20191211
  Receipt Date: 20191211
  Transmission Date: 20200122
  Serious: Yes (Hospitalization, Other)
  Sender: FDA-Public Use
  Company Number: GB-LUPIN PHARMACEUTICALS INC.-2019-08146

PATIENT
  Age: 26 Year
  Sex: Female
  Weight: 80.73 kg

DRUGS (5)
  1. LEVETIRACETAM. [Suspect]
     Active Substance: LEVETIRACETAM
     Indication: EPILEPSY
     Dosage: 750 MILLIGRAM, QD, MORNING
     Route: 048
     Dates: start: 20190215, end: 20191026
  2. METFORMIN [Concomitant]
     Active Substance: METFORMIN HYDROCHLORIDE
     Indication: PRODUCT USED FOR UNKNOWN INDICATION
     Dosage: UNK
     Route: 065
  3. LEVETIRACETAM. [Suspect]
     Active Substance: LEVETIRACETAM
     Dosage: 1000 MILLIGRAM, QD, EVENING
     Route: 048
     Dates: start: 20190215, end: 20191026
  4. SODIUM VALPROATE [Concomitant]
     Active Substance: VALPROATE SODIUM
     Indication: PRODUCT USED FOR UNKNOWN INDICATION
     Dosage: UNK
     Route: 065
     Dates: end: 20190724
  5. LEVOTHYROXINE. [Concomitant]
     Active Substance: LEVOTHYROXINE
     Indication: PRODUCT USED FOR UNKNOWN INDICATION
     Dosage: UNK
     Route: 065

REACTIONS (13)
  - Oropharyngeal pain [Recovered/Resolved]
  - Myalgia [Unknown]
  - Hallucination [Recovering/Resolving]
  - Headache [Recovered/Resolved]
  - Paraesthesia [Recovered/Resolved]
  - Bone pain [Recovered/Resolved]
  - Fatigue [Recovering/Resolving]
  - Dyskinesia [Recovered/Resolved]
  - Excessive eye blinking [Recovered/Resolved]
  - Amnesia [Recovering/Resolving]
  - Dizziness [Recovered/Resolved]
  - Abnormal behaviour [Unknown]
  - Pruritus [Recovered/Resolved]

NARRATIVE: CASE EVENT DATE: 201909
